FAERS Safety Report 18033503 (Version 1)
Quarter: 2020Q3

REPORT INFORMATION
  Report Type: Spontaneous
  Country: FR (occurrence: FR)
  Receive Date: 20200716
  Receipt Date: 20200716
  Transmission Date: 20201103
  Serious: Yes (Other)
  Sender: FDA-Public Use
  Company Number: FR-MYLANLABS-2020M1063377

PATIENT
  Age: 66 Year
  Sex: Female
  Weight: 57 kg

DRUGS (7)
  1. PREDNISOLONE. [Concomitant]
     Active Substance: PREDNISOLONE
     Indication: VOMITING
     Dosage: UNK, 40 MG J2 ET J3 POST?CHIMIO
     Route: 048
     Dates: start: 20191018, end: 20200402
  2. OXALIPLATIN. [Suspect]
     Active Substance: OXALIPLATIN
     Indication: COLORECTAL ADENOCARCINOMA
     Dosage: 85 MILLIGRAM/SQ. METER, BIWEEKLY
     Route: 042
     Dates: start: 20191018, end: 20200204
  3. METOCLOPRAMIDE. [Concomitant]
     Active Substance: METOCLOPRAMIDE
     Indication: VOMITING
     Dosage: UNK, 10 MG SI NAUSEES, JUSQUA 30 MG/J
     Route: 048
     Dates: start: 20191018, end: 20200402
  4. APREPITANT. [Concomitant]
     Active Substance: APREPITANT
     Indication: VOMITING
     Dosage: UNK, 125 MG J1 ET 80 MG J2?J3 POST?CHIMIO
     Route: 048
     Dates: start: 20191018, end: 20200402
  5. SODIUM BICARBONATE. [Concomitant]
     Active Substance: SODIUM BICARBONATE
     Indication: STOMATITIS
     Dosage: UNK, BDB APRES LES REPAS
     Route: 002
     Dates: start: 20191018, end: 20200402
  6. FLUOROURACILE [Suspect]
     Active Substance: FLUOROURACIL
     Indication: COLORECTAL ADENOCARCINOMA
     Dosage: 2800 MILLIGRAM/SQ. METER, BIWEEKLY, CASSETTE SUR 48H
     Route: 042
     Dates: start: 20191018, end: 20200331
  7. LOPERAMIDE CHLORHYDRATE [Concomitant]
     Active Substance: LOPERAMIDE HYDROCHLORIDE
     Indication: DIARRHOEA
     Dosage: UNK, 2 MG SI DIARRHES, MAX 8 PAR JOUR
     Route: 048
     Dates: start: 20191018, end: 20200402

REACTIONS (3)
  - Neuropathy peripheral [Unknown]
  - Agranulocytosis [Recovered/Resolved]
  - Interstitial lung disease [Recovered/Resolved]

NARRATIVE: CASE EVENT DATE: 20200113
